FAERS Safety Report 4967557-3 (Version None)
Quarter: 2006Q2

REPORT INFORMATION
  Report Type: 
  Country: None (occurrence: None)
  Receive Date: 20060407
  Receipt Date: 20060407
  Transmission Date: 20061013
  Serious: Yes (Hospitalization)
  Sender: FDA-Public Use
  Company Number: None

PATIENT
  Age: 42 Year
  Sex: Female
  Weight: 75.7 kg

DRUGS (2)
  1. PHENYTOIN [Suspect]
     Indication: CONVULSION PROPHYLAXIS
     Dosage: 300MG  BID   PO
     Route: 048
     Dates: start: 20051130, end: 20051208
  2. PHENYTOIN [Suspect]
     Indication: POSTOPERATIVE CARE
     Dosage: 300MG  BID   PO
     Route: 048
     Dates: start: 20051130, end: 20051208

REACTIONS (7)
  - BODY TEMPERATURE INCREASED [None]
  - DERMATITIS [None]
  - HEART RATE INCREASED [None]
  - PSORIASIS [None]
  - RASH ERYTHEMATOUS [None]
  - RASH MACULAR [None]
  - URINARY TRACT INFECTION [None]
